FAERS Safety Report 6148236-6 (Version None)
Quarter: 2009Q2

REPORT INFORMATION
  Report Type: 
  Country: None (occurrence: None)
  Receive Date: 20090406
  Receipt Date: 20090324
  Transmission Date: 20091009
  Serious: Yes (Death, Congenital Anomaly, Other)
  Sender: FDA-Public Use
  Company Number: 2009AP001098

PATIENT
  Sex: Female

DRUGS (1)
  1. BENAZEPRIL HYDROCHLORIDE [Suspect]
     Dosage: TRPL
     Route: 064

REACTIONS (7)
  - MATERNAL DRUGS AFFECTING FOETUS [None]
  - NEONATAL ANURIA [None]
  - NEONATAL RESPIRATORY FAILURE [None]
  - PATENT DUCTUS ARTERIOSUS [None]
  - PREMATURE BABY [None]
  - PULMONARY HYPERTENSION [None]
  - PULMONARY HYPOPLASIA [None]
